FAERS Safety Report 10747213 (Version 4)
Quarter: 2016Q1

REPORT INFORMATION
  Report Type: Spontaneous
  Country: TR (occurrence: TR)
  Receive Date: 20150129
  Receipt Date: 20160302
  Transmission Date: 20160525
  Serious: Yes (Other)
  Sender: FDA-Public Use
  Company Number: TR-AMGEN-TURSP2014083460

PATIENT
  Age: 35 Year
  Sex: Female

DRUGS (5)
  1. DILTIZEM SR [Concomitant]
     Dosage: UNK
  2. ENBREL [Suspect]
     Active Substance: ETANERCEPT
     Indication: ANKYLOSING SPONDYLITIS
     Dosage: 50 MG, WEEKLY
     Route: 058
     Dates: start: 20140813, end: 20141007
  3. TETRADOX                           /00055702/ [Suspect]
     Active Substance: DOXYCYCLINE HYCLATE
     Indication: UTERINE INFLAMMATION
     Dosage: UNK
     Route: 065
  4. ENBREL [Suspect]
     Active Substance: ETANERCEPT
     Dosage: 50 MG, WEEKLY
     Route: 058
     Dates: start: 2014, end: 20151215
  5. ENDOL                              /00003801/ [Concomitant]
     Dosage: UNK

REACTIONS (10)
  - Oral herpes [Not Recovered/Not Resolved]
  - Wound [Not Recovered/Not Resolved]
  - Dizziness [Not Recovered/Not Resolved]
  - Decreased immune responsiveness [Unknown]
  - Uterine inflammation [Not Recovered/Not Resolved]
  - Gastrooesophageal sphincter insufficiency [Not Recovered/Not Resolved]
  - Oesophageal ulcer [Not Recovered/Not Resolved]
  - Vascular occlusion [Not Recovered/Not Resolved]
  - Arrhythmia [Not Recovered/Not Resolved]
  - Chronic gastritis [Not Recovered/Not Resolved]

NARRATIVE: CASE EVENT DATE: 2014
